FAERS Safety Report 15765147 (Version 2)
Quarter: 2019Q1

REPORT INFORMATION
  Report Type: Spontaneous
  Country: US (occurrence: US)
  Receive Date: 20181227
  Receipt Date: 20190102
  Transmission Date: 20190417
  Serious: Yes (Other)
  Sender: FDA-Public Use
  Company Number: US-PCCINC-2018-PEL-003531

PATIENT

DRUGS (3)
  1. GABLOFEN [Suspect]
     Active Substance: BACLOFEN
     Indication: MUSCLE SPASTICITY
     Dosage: 49.96 MICROGRAM, QD
     Route: 037
  2. MORPHINE [Interacting]
     Active Substance: MORPHINE
     Indication: MUSCLE SPASTICITY
     Dosage: UNK
     Route: 037
  3. GABLOFEN [Interacting]
     Active Substance: BACLOFEN
     Dosage: 150 MICROGRAM, QD

REACTIONS (8)
  - Off label use [Unknown]
  - Swelling [Recovered/Resolved]
  - Cerebrospinal fluid leakage [Recovered/Resolved]
  - Implant site extravasation [Recovered/Resolved]
  - Headache [Recovered/Resolved]
  - Feeling abnormal [Recovered/Resolved]
  - Device connection issue [Recovered/Resolved]
  - Drug ineffective [Recovered/Resolved]
